FAERS Safety Report 8080587-0 (Version None)
Quarter: 2012Q1

REPORT INFORMATION
  Report Type: 
  Country: None (occurrence: None)
  Receive Date: 20120130
  Receipt Date: 20120124
  Transmission Date: 20120608
  Serious: Yes (Other)
  Sender: FDA-Public Use
  Company Number: US-PFIZER INC-2011308827

PATIENT
  Sex: Female
  Weight: 38 kg

DRUGS (4)
  1. ETHIONAMIDE [Suspect]
     Indication: TUBERCULOSIS
     Dosage: 250 MG, 2X/DAY
  2. AMIKACIN [Suspect]
     Indication: TUBERCULOSIS
     Dosage: 750 MG, 3X/WEEK
     Route: 042
     Dates: start: 20110101, end: 20111101
  3. MOXIFLOXACIN [Suspect]
     Indication: TUBERCULOSIS
     Dosage: 400 MG, 1X/DAY
  4. LINEZOLID [Suspect]
     Indication: TUBERCULOSIS
     Dosage: 600 MG, 3X/WEEK

REACTIONS (2)
  - DISEASE PROGRESSION [None]
  - HYPOACUSIS [None]
